FAERS Safety Report 4705847-X (Version None)
Quarter: 2005Q2

REPORT INFORMATION
  Report Type: 
  Country: None (occurrence: None)
  Receive Date: 20050629
  Receipt Date: 20050316
  Transmission Date: 20051028
  Serious: Yes (Hospitalization)
  Sender: FDA-Public Use
  Company Number: 05P-163-0294233-00

PATIENT
  Age: 65 Year
  Sex: Female
  Weight: 43.0917 kg

DRUGS (7)
  1. HUMIRA [Suspect]
     Indication: RHEUMATOID ARTHRITIS
     Dosage: 40 MG, 1 IN 2 WK, SUBCUTANEOUS
     Route: 058
     Dates: start: 20050307
  2. RISEDRONATE SODIUM [Concomitant]
  3. FUROSEMIDE [Concomitant]
  4. POTASSIUM CHLORIDE [Concomitant]
  5. PHENERGAN [Concomitant]
  6. LISINOPRIL [Concomitant]
  7. VICODIN [Concomitant]

REACTIONS (1)
  - WOUND INFECTION STAPHYLOCOCCAL [None]
